FAERS Safety Report 10076863 (Version 1)
Quarter: 2014Q2

REPORT INFORMATION
  Report Type: Report from Study
  Country: US (occurrence: US)
  Receive Date: 20140414
  Receipt Date: 20140414
  Transmission Date: 20141212
  Serious: Yes (Other)
  Sender: FDA-Public Use
  Company Number: US-GILEAD-2014-0099432

PATIENT
  Age: 61 Year
  Sex: Male

DRUGS (2)
  1. SOFOSBUVIR [Suspect]
     Indication: CHRONIC HEPATITIS C
     Dosage: 400 MG, UNK
     Route: 065
     Dates: start: 20140214
  2. RIBAVIRIN [Concomitant]

REACTIONS (2)
  - Hallucination [Unknown]
  - Insomnia [Unknown]
